FAERS Safety Report 6436185-5 (Version None)
Quarter: 2009Q4

REPORT INFORMATION
  Report Type: 
  Country: None (occurrence: None)
  Receive Date: 20091111
  Receipt Date: 20091103
  Transmission Date: 20100525
  Serious: Yes (Other)
  Sender: FDA-Public Use
  Company Number: FR-ROCHE-666474

PATIENT
  Sex: Male

DRUGS (8)
  1. VESANOID [Suspect]
     Indication: ACUTE PROMYELOCYTIC LEUKAEMIA
     Route: 048
     Dates: start: 20070523, end: 20070901
  2. VESANOID [Suspect]
     Dosage: REDUCED DOSE
     Route: 048
     Dates: start: 20071001
  3. METHOTREXATE [Suspect]
     Indication: ACUTE PROMYELOCYTIC LEUKAEMIA
     Dosage: DRUG: METHOTREXATE BELLON
     Route: 048
     Dates: start: 20070801, end: 20070901
  4. METHOTREXATE [Suspect]
     Dosage: AT REDUCED DOSE
     Route: 048
     Dates: start: 20071001
  5. PURINETHOL [Suspect]
     Indication: ACUTE PROMYELOCYTIC LEUKAEMIA
     Dosage: FORM: DIVISIBLE TABLET
     Route: 048
     Dates: start: 20070801, end: 20070901
  6. PURINETHOL [Suspect]
     Dosage: AT REDUCED DOSE
     Route: 048
     Dates: start: 20071001
  7. FOLINIC ACID [Concomitant]
  8. FOLINIC ACID [Concomitant]
     Dates: start: 20071001

REACTIONS (3)
  - AGRANULOCYTOSIS [None]
  - ANAEMIA [None]
  - DIARRHOEA [None]
